FAERS Safety Report 6698853-X (Version None)
Quarter: 2010Q2

REPORT INFORMATION
  Report Type: 
  Country: None (occurrence: None)
  Receive Date: 20100427
  Receipt Date: 20100423
  Transmission Date: 20101027
  Serious: Yes (Death, Hospitalization, Other)
  Sender: FDA-Public Use
  Company Number: PHHY2009GB29967

PATIENT
  Sex: Female
  Weight: 127 kg

DRUGS (8)
  1. CLOZARIL [Suspect]
     Indication: SCHIZOPHRENIA
     Dosage: 400 MG/DAY
     Route: 048
     Dates: start: 20070515
  2. CLOZARIL [Suspect]
     Dosage: 375 MG/ DAILY
     Dates: end: 20090717
  3. SIMVASTATIN [Concomitant]
     Dosage: 40 MG/ DAILY
     Route: 048
  4. GAVISCON [Concomitant]
     Indication: DYSPEPSIA
     Dosage: 10 MG/ DAILY
     Route: 048
  5. LANSOPRAZOLE [Concomitant]
     Dosage: 10 ML/ DAILY
     Route: 048
  6. ASPIRIN [Concomitant]
     Indication: PROPHYLAXIS
     Dosage: 75 MG DAILY
     Route: 048
  7. HYOSCINE [Concomitant]
     Indication: DROOLING
     Dosage: 300 MG DAILY
     Route: 048
  8. CITALOPRAM [Concomitant]
     Dosage: 60 MG, UNK
     Route: 048

REACTIONS (4)
  - BRONCHOPNEUMONIA [None]
  - CHRONIC OBSTRUCTIVE PULMONARY DISEASE [None]
  - MALAISE [None]
  - PULMONARY EMBOLISM [None]
